FAERS Safety Report 8156773 (Version 1)
Quarter: 2020Q3

REPORT INFORMATION
  Report Type: Report from Study
  Country: CZ (occurrence: CZ)
  Receive Date: 20110926
  Receipt Date: 20110926
  Transmission Date: 20201104
  Serious: Yes (Hospitalization)
  Sender: FDA-Public Use
  Company Number: CZ-JNJFOC-20100206101

PATIENT
  Age: 60 Year
  Sex: Male
  Weight: 117 kg

DRUGS (29)
  1. DIAZEPAM. [Concomitant]
     Active Substance: DIAZEPAM
  2. AMLODIPINE [Concomitant]
     Active Substance: AMLODIPINE BESYLATE
  3. SIMETICONE [Concomitant]
  4. ASPIRIN. [Suspect]
     Active Substance: ASPIRIN
     Indication: ACUTE CORONARY SYNDROME
     Dates: start: 20100208
  5. ATORVASTATIN [Concomitant]
     Active Substance: ATORVASTATIN
  6. HEPARIN [Concomitant]
     Active Substance: HEPARIN SODIUM
  7. DIAZEPAM. [Concomitant]
     Active Substance: DIAZEPAM
  8. ASPIRIN. [Suspect]
     Active Substance: ASPIRIN
     Dates: end: 20100129
  9. CLOPIDOGREL [Suspect]
     Active Substance: CLOPIDOGREL BISULFATE
     Dates: end: 20100129
  10. SUFENTANIL CITRATE. [Concomitant]
     Active Substance: SUFENTANIL CITRATE
  11. METOPROLOL. [Concomitant]
     Active Substance: METOPROLOL
  12. POTASSIUM CHLORIDE. [Concomitant]
     Active Substance: POTASSIUM CHLORIDE
  13. MAGNESIUM SULFATE. [Concomitant]
     Active Substance: MAGNESIUM SULFATE
  14. METFORMIN HYDROCHLORIDE. [Concomitant]
     Active Substance: METFORMIN HYDROCHLORIDE
  15. ASPIRIN. [Suspect]
     Active Substance: ASPIRIN
     Dates: end: 20100206
  16. CLOPIDOGREL [Suspect]
     Active Substance: CLOPIDOGREL BISULFATE
     Indication: ACUTE CORONARY SYNDROME
     Dates: start: 20100206, end: 20100208
  17. OMEPRAZOLE. [Concomitant]
     Active Substance: OMEPRAZOLE
  18. BISOPROLOL [Concomitant]
     Active Substance: BISOPROLOL
  19. CLOPIDOGREL [Suspect]
     Active Substance: CLOPIDOGREL BISULFATE
     Dates: start: 20100212
  20. ISOSORBIDE DINITRATE. [Concomitant]
     Active Substance: ISOSORBIDE DINITRATE
  21. POTASSIUM CHLORIDE. [Concomitant]
     Active Substance: POTASSIUM CHLORIDE
  22. RIVAROXABAN [Suspect]
     Active Substance: RIVAROXABAN
     Dosage: 2.5 MG OR 5 MG
     Route: 048
     Dates: start: 20100201, end: 20100201
  23. RIVAROXABAN [Suspect]
     Active Substance: RIVAROXABAN
     Indication: ACUTE CORONARY SYNDROME
     Route: 048
     Dates: start: 20100216
  24. CLOPIDOGREL [Suspect]
     Active Substance: CLOPIDOGREL BISULFATE
     Dates: end: 20100205
  25. INSULIN NOS [Concomitant]
     Active Substance: INSULIN NOS
  26. RIVAROXABAN [Suspect]
     Active Substance: RIVAROXABAN
     Dosage: 2.5 MG OR 5 MG
     Route: 048
     Dates: start: 20100202, end: 20100208
  27. ASPIRIN. [Suspect]
     Active Substance: ASPIRIN
     Dates: start: 20100210
  28. FONDAPARINUX SODIUM. [Concomitant]
     Active Substance: FONDAPARINUX SODIUM
  29. RAMIPRIL. [Concomitant]
     Active Substance: RAMIPRIL

REACTIONS (2)
  - Vascular pseudoaneurysm [Recovered/Resolved]
  - Puncture site haemorrhage [Recovered/Resolved]

NARRATIVE: CASE EVENT DATE: 20100207
